APPROVED DRUG PRODUCT: OFLOXACIN
Active Ingredient: OFLOXACIN
Strength: 0.3%
Dosage Form/Route: SOLUTION/DROPS;OTIC
Application: A211525 | Product #001 | TE Code: AT
Applicant: AMNEAL EU LTD
Approved: Aug 30, 2019 | RLD: No | RS: No | Type: RX